FAERS Safety Report 22378449 (Version 1)
Quarter: 2023Q2

REPORT INFORMATION
  Report Type: Spontaneous
  Country: US (occurrence: US)
  Receive Date: 20230529
  Receipt Date: 20230529
  Transmission Date: 20230722
  Serious: No
  Sender: FDA-Public Use
  Company Number: US-PERRIGO-22US015339

PATIENT
  Age: 60 Year
  Sex: Male
  Weight: 79.365 kg

DRUGS (1)
  1. MINOXIDIL [Suspect]
     Active Substance: MINOXIDIL
     Indication: Alopecia
     Dosage: SMALL AMOUNT, BID
     Route: 061
     Dates: start: 20220930, end: 20221014

REACTIONS (13)
  - Skin exfoliation [Recovered/Resolved]
  - Burns second degree [Recovered/Resolved]
  - Blister [Recovering/Resolving]
  - Visual impairment [Recovering/Resolving]
  - Flushing [Recovered/Resolved]
  - Skin burning sensation [Recovered/Resolved]
  - Application site exfoliation [Recovering/Resolving]
  - Eyelid margin crusting [Recovering/Resolving]
  - Eye swelling [Recovering/Resolving]
  - Skin discolouration [Not Recovered/Not Resolved]
  - Scar [Not Recovered/Not Resolved]
  - Hypersensitivity [Recovering/Resolving]
  - Application site pain [Recovered/Resolved]

NARRATIVE: CASE EVENT DATE: 20220930
